FAERS Safety Report 7405480-5 (Version None)
Quarter: 2011Q2

REPORT INFORMATION
  Report Type: 
  Country: None (occurrence: None)
  Receive Date: 20110411
  Receipt Date: 20110215
  Transmission Date: 20111010
  Serious: Yes (Other)
  Sender: FDA-Public Use
  Company Number: US-BAYER-201013776NA

PATIENT
  Age: 42 Year
  Sex: Female
  Weight: 72.562 kg

DRUGS (7)
  1. FAMOTIDINE [Concomitant]
     Indication: ABDOMINAL DISTENSION
     Dosage: 20 MG, BID
     Route: 048
     Dates: start: 20090902, end: 20100114
  2. YASMIN [Suspect]
     Indication: CONTRACEPTION
     Dosage: UNK
     Route: 048
     Dates: start: 20010101, end: 20030101
  3. LORAZEPAM [Concomitant]
     Indication: ANXIETY
     Dosage: 0.5 MG, BID
     Dates: start: 20091029, end: 20100114
  4. IBUPROFEN [Concomitant]
  5. PHENTERMINE [Concomitant]
     Dosage: UNK UNK, QD
  6. LEVOTHROID [Concomitant]
  7. YASMIN [Suspect]
     Indication: ACNE
     Dosage: UNK
     Dates: start: 20070101, end: 20091213

REACTIONS (7)
  - COMMUNICATION DISORDER [None]
  - MEMORY IMPAIRMENT [None]
  - DYSARTHRIA [None]
  - ABDOMINAL PAIN UPPER [None]
  - CEREBROVASCULAR ACCIDENT [None]
  - GALLBLADDER DISORDER [None]
  - CHOLECYSTITIS CHRONIC [None]
